FAERS Safety Report 17084213 (Version 2)
Quarter: 2019Q4

REPORT INFORMATION
  Report Type: Spontaneous
  Country: SE (occurrence: SE)
  Receive Date: 20191127
  Receipt Date: 20191202
  Transmission Date: 20200122
  Serious: Yes (Hospitalization)
  Sender: FDA-Public Use
  Company Number: SE-PFIZER INC-2019511056

PATIENT
  Age: 22 Year
  Sex: Female

DRUGS (3)
  1. IMOVANE [Suspect]
     Active Substance: ZOPICLONE
     Dosage: 112.5 MG, UNK
     Route: 048
     Dates: start: 20180528, end: 20180528
  2. LYRICA [Suspect]
     Active Substance: PREGABALIN
     Dosage: 1125 MG, UNK
     Route: 048
     Dates: start: 20180528, end: 20180528
  3. LERGIGAN [PROMETHAZINE HYDROCHLORIDE] [Suspect]
     Active Substance: PROMETHAZINE HYDROCHLORIDE
     Dosage: 250 DF, UNK
     Route: 048
     Dates: start: 20180528, end: 20180528

REACTIONS (4)
  - Fatigue [Unknown]
  - Intentional self-injury [Unknown]
  - Electrocardiogram QT prolonged [Unknown]
  - Intentional overdose [Unknown]

NARRATIVE: CASE EVENT DATE: 20180528
